FAERS Safety Report 7468346-0 (Version None)
Quarter: 2011Q2

REPORT INFORMATION
  Report Type: 
  Country: None (occurrence: None)
  Receive Date: 20110509
  Receipt Date: 20110504
  Transmission Date: 20111010
  Serious: Yes (Other)
  Sender: FDA-Public Use
  Company Number: CHPA2011US06303

PATIENT
  Age: 76 Year
  Sex: Female
  Weight: 65.306 kg

DRUGS (4)
  1. VOLTAREN [Suspect]
     Indication: BURSITIS
     Dosage: 4 G, TWICE A WEEK
     Route: 061
  2. VOLTAREN [Suspect]
     Dosage: 4 G, 3 OR 4 TIMES A WEEK
     Route: 061
     Dates: start: 20101101, end: 20110101
  3. TOPROL-XL [Concomitant]
     Indication: BLOOD PRESSURE ABNORMAL
     Dosage: 25 MG, QD
     Route: 048
  4. TOPROL-XL [Concomitant]
     Dosage: 50 MG, QD
     Route: 048

REACTIONS (6)
  - KNEE ARTHROPLASTY [None]
  - BLOOD PRESSURE DECREASED [None]
  - OFF LABEL USE [None]
  - DRUG ADMINISTERED AT INAPPROPRIATE SITE [None]
  - THERAPEUTIC RESPONSE UNEXPECTED [None]
  - OPERATIVE HAEMORRHAGE [None]
